FAERS Safety Report 9624365 (Version 3)
Quarter: 2014Q1

REPORT INFORMATION
  Report Type: Spontaneous
  Country: US (occurrence: US)
  Receive Date: 20131015
  Receipt Date: 20140131
  Transmission Date: 20141002
  Serious: Yes (Hospitalization)
  Sender: FDA-Public Use
  Company Number: US-GLAXOSMITHKLINE-A1045470A

PATIENT
  Age: 74 Year
  Sex: Female

DRUGS (1)
  1. ADVAIR [Suspect]
     Indication: DYSPNOEA
     Dosage: 1PUFF TWICE PER DAY
     Route: 055
     Dates: start: 2002

REACTIONS (6)
  - Lung carcinoma cell type unspecified stage IV [Unknown]
  - Arthritis [Unknown]
  - Musculoskeletal disorder [Unknown]
  - Chronic obstructive pulmonary disease [Unknown]
  - Nasopharyngitis [Unknown]
  - Underdose [Unknown]
